FAERS Safety Report 9223021 (Version 2)
Quarter: 2013Q3

REPORT INFORMATION
  Report Type: Spontaneous
  Country: DE (occurrence: None)
  Receive Date: 20120914
  Receipt Date: 20130916
  Transmission Date: 20140515
  Serious: Yes (Hospitalization)
  Sender: FDA-Public Use
  Company Number: JPI-P-019899

PATIENT
  Age: 67 Year
  Sex: Male
  Weight: 89 kg

DRUGS (6)
  1. XYREM [Suspect]
     Indication: PRODUCT USED FOR UNKNOWN INDICATION
     Route: 048
     Dates: start: 2006
  2. METHYLPHENIDATE HYDROCHLORIDE [Concomitant]
  3. MODAFINIL [Concomitant]
  4. MORPHINE [Concomitant]
  5. TORASEMID [Concomitant]
  6. BERLINSULIN NORMAL [Concomitant]

REACTIONS (7)
  - Sleep apnoea syndrome [None]
  - Drug effect decreased [None]
  - Weight increased [None]
  - Fatigue [None]
  - Sleep attacks [None]
  - Asthenia [None]
  - Insomnia [None]
